FAERS Safety Report 5833462-3 (Version None)
Quarter: 2008Q3

REPORT INFORMATION
  Report Type: 
  Country: None (occurrence: None)
  Receive Date: 20080805
  Receipt Date: 20080728
  Transmission Date: 20090109
  Serious: Yes (Other)
  Sender: FDA-Public Use
  Company Number: US-ASTRAZENECA-2006UW21763

PATIENT
  Age: 16249 Day
  Sex: Male
  Weight: 104.3 kg

DRUGS (3)
  1. SEROQUEL [Suspect]
     Indication: DEPRESSION
     Route: 048
     Dates: start: 20040101, end: 20070930
  2. SEROQUEL [Suspect]
     Indication: ANXIETY
     Route: 048
     Dates: start: 20040101, end: 20070930
  3. ZOLOFT [Concomitant]
     Dates: start: 19960101, end: 20010101

REACTIONS (2)
  - CORONARY ARTERIAL STENT INSERTION [None]
  - DIABETES MELLITUS [None]
